FAERS Safety Report 20167912 (Version 4)
Quarter: 2022Q3

REPORT INFORMATION
  Report Type: Spontaneous
  Country: CZ (occurrence: CZ)
  Receive Date: 20211210
  Receipt Date: 20220803
  Transmission Date: 20221027
  Serious: Yes (Life-Threatening, Hospitalization, Other)
  Sender: FDA-Public Use
  Company Number: CZ-SUN PHARMACEUTICAL INDUSTRIES LTD-2021R1-319944

PATIENT
  Age: 77 Year
  Sex: Male

DRUGS (35)
  1. DESMOPRESSIN [Suspect]
     Active Substance: DESMOPRESSIN
     Indication: Lower urinary tract symptoms
     Dosage: 60 UG, QD (0-0-0-0-1)
     Route: 065
  2. DESMOPRESSIN [Suspect]
     Active Substance: DESMOPRESSIN
     Indication: Lower urinary tract symptoms
  3. GABAPENTIN [Suspect]
     Active Substance: GABAPENTIN
     Indication: Epilepsy
     Dosage: 100 MILLIGRAM, TID
     Route: 065
  4. GABAPENTIN [Suspect]
     Active Substance: GABAPENTIN
     Indication: Product used for unknown indication
     Dosage: 100 MG, TID (1-1-1)
     Route: 065
  5. LEVETIRACETAM [Suspect]
     Active Substance: LEVETIRACETAM
     Indication: Epilepsy
     Dosage: 500 MILLIGRAM, BID
     Route: 065
  6. LEVETIRACETAM [Suspect]
     Active Substance: LEVETIRACETAM
     Indication: Product used for unknown indication
     Dosage: 500 MG, BID (1-0-1)
     Route: 065
  7. SOLIFENACIN [Suspect]
     Active Substance: SOLIFENACIN
     Indication: Dysuria
     Dosage: 10 MG, ONCE DAILY (1-0-0)
     Route: 065
  8. SOLIFENACIN [Suspect]
     Active Substance: SOLIFENACIN
     Indication: Urinary retention
  9. SOLIFENACIN [Suspect]
     Active Substance: SOLIFENACIN
     Indication: Urinary tract infection
  10. SOLIFENACIN [Suspect]
     Active Substance: SOLIFENACIN
     Indication: Dysuria
  11. SOLIFENACIN [Suspect]
     Active Substance: SOLIFENACIN
     Indication: Product used for unknown indication
  12. ASPIRIN [Concomitant]
     Active Substance: ASPIRIN
     Indication: Product used for unknown indication
     Dosage: 100 MG, QD (1-0-0)
     Route: 065
  13. ASPIRIN [Concomitant]
     Active Substance: ASPIRIN
     Indication: Product used for unknown indication
  14. ATORVASTATIN [Concomitant]
     Active Substance: ATORVASTATIN
     Indication: Product used for unknown indication
     Dosage: 15 MG, QD (0-0-1)
     Route: 065
  15. ATORVASTATIN [Concomitant]
     Active Substance: ATORVASTATIN
     Indication: Product used for unknown indication
  16. BISOPROLOL [Concomitant]
     Active Substance: BISOPROLOL
     Indication: Cardiac failure
     Dosage: 5 MG, QD (1-0-0)
     Route: 065
  17. BISOPROLOL [Concomitant]
     Active Substance: BISOPROLOL
     Indication: Cardiac failure
     Route: 065
  18. BISOPROLOL [Concomitant]
     Active Substance: BISOPROLOL
     Indication: Product used for unknown indication
  19. DARIFENACIN [Concomitant]
     Active Substance: DARIFENACIN
     Indication: Urinary tract infection
     Dosage: 15 MG, QD (1-0-0)
     Route: 065
  20. DOXAZOSIN [Concomitant]
     Active Substance: DOXAZOSIN MESYLATE
     Indication: Lower urinary tract symptoms
     Dosage: 4 MG, QD (0-0-1)
     Route: 065
  21. LERCANIDIPINE [Concomitant]
     Active Substance: LERCANIDIPINE
     Indication: Product used for unknown indication
     Dosage: 20 MG, QD (0-0-1)
     Route: 065
  22. LERCANIDIPINE [Concomitant]
     Active Substance: LERCANIDIPINE
     Indication: Product used for unknown indication
  23. SODIUM CHLORIDE [Concomitant]
     Active Substance: SODIUM CHLORIDE
     Indication: Hyponatraemia
     Dosage: 1000 MILLIGRAM, BID
     Route: 065
  24. SODIUM CHLORIDE [Concomitant]
     Active Substance: SODIUM CHLORIDE
     Indication: Hyponatraemia
     Dosage: 1000 MG, TWICE DAILY (1-0-1) (INDIVIDUALY PREPARED CAPSULES)
     Route: 065
  25. OMEPRAZOLE [Concomitant]
     Active Substance: OMEPRAZOLE
     Indication: Product used for unknown indication
     Dosage: 20 MG, QD(1-0-0)
     Route: 065
  26. OMEPRAZOLE [Concomitant]
     Active Substance: OMEPRAZOLE
     Indication: Product used for unknown indication
  27. PERINDOPRIL [Concomitant]
     Active Substance: PERINDOPRIL
     Indication: Product used for unknown indication
     Dosage: 4 MG, QD (1-0-0)
     Route: 065
  28. PERINDOPRIL [Concomitant]
     Active Substance: PERINDOPRIL
     Indication: Product used for unknown indication
     Route: 065
  29. PERINDOPRIL [Concomitant]
     Active Substance: PERINDOPRIL
     Indication: Cardiac failure
  30. SPIRONOLACTONE [Concomitant]
     Active Substance: SPIRONOLACTONE
     Indication: Product used for unknown indication
     Dosage: 25 MG, QD (1-0-0)
     Route: 048
  31. SPIRONOLACTONE [Concomitant]
     Active Substance: SPIRONOLACTONE
     Indication: Cardiac failure
  32. DARIFENACIN [Suspect]
     Active Substance: DARIFENACIN
     Indication: Urinary retention
     Route: 065
  33. DARIFENACIN [Suspect]
     Active Substance: DARIFENACIN
     Indication: Dysuria
  34. DOXAZOSIN [Suspect]
     Active Substance: DOXAZOSIN MESYLATE
     Indication: Hypertension
     Route: 065
  35. DOXAZOSIN [Suspect]
     Active Substance: DOXAZOSIN MESYLATE
     Indication: Lower urinary tract symptoms

REACTIONS (16)
  - Hyponatraemia [Recovered/Resolved]
  - Peripheral swelling [Unknown]
  - Cognitive disorder [Unknown]
  - Product use in unapproved indication [Unknown]
  - Duplicate therapy error [Unknown]
  - Peripheral swelling [Recovered/Resolved]
  - Off label use [Unknown]
  - Concomitant disease aggravated [Unknown]
  - Overdose [Unknown]
  - Intentional product misuse [Unknown]
  - Hyponatraemia [Recovered/Resolved]
  - Urinary retention [Unknown]
  - Duplicate therapy error [Unknown]
  - Dysuria [Unknown]
  - Urinary tract infection [Unknown]
  - Cognitive disorder [Unknown]

NARRATIVE: CASE EVENT DATE: 20200101
